FAERS Safety Report 7942805-6 (Version None)
Quarter: 2011Q4

REPORT INFORMATION
  Report Type: 
  Country: None (occurrence: None)
  Receive Date: 20111128
  Receipt Date: 20111109
  Transmission Date: 20120403
  Serious: Yes (Hospitalization)
  Sender: FDA-Public Use
  Company Number: AU-MYLANLABS-2011S1023770

PATIENT
  Age: 72 Year
  Sex: Male

DRUGS (3)
  1. ASPIRIN [Concomitant]
  2. SAXAGLIPTIN [Concomitant]
  3. BISOPROLOL FUMARATE [Suspect]
     Indication: HYPERTENSION

REACTIONS (2)
  - ATRIAL FIBRILLATION [None]
  - BRADYCARDIA [None]
